FAERS Safety Report 21274916 (Version 1)
Quarter: 2022Q3

REPORT INFORMATION
  Report Type: Spontaneous
  Country: US (occurrence: US)
  Receive Date: 20220831
  Receipt Date: 20220831
  Transmission Date: 20221027
  Serious: No
  Sender: FDA-Public Use
  Company Number: US-AMERICAN REGENT INC-2021001994

PATIENT
  Age: 79 Year
  Sex: Female

DRUGS (2)
  1. FERRIC CARBOXYMALTOSE [Suspect]
     Active Substance: FERRIC CARBOXYMALTOSE
     Indication: Product used for unknown indication
     Dosage: 1ST INJECTAFER INFUSION
     Route: 042
  2. FERRIC CARBOXYMALTOSE [Suspect]
     Active Substance: FERRIC CARBOXYMALTOSE
     Dosage: UNK, SINGLE (2ND INJECTAFER INFUSION)
     Route: 042
     Dates: start: 20210713, end: 20210713

REACTIONS (3)
  - Nausea [Unknown]
  - Flushing [Unknown]
  - Vomiting [Unknown]

NARRATIVE: CASE EVENT DATE: 20210713
